FAERS Safety Report 5187473-4 (Version None)
Quarter: 2006Q4

REPORT INFORMATION
  Report Type: 
  Country: None (occurrence: None)
  Receive Date: 20061220
  Receipt Date: 20060412
  Transmission Date: 20070319
  Serious: No
  Sender: FDA-Public Use
  Company Number: US-AMGEN-US176458

PATIENT
  Sex: Female

DRUGS (1)
  1. ENBREL [Suspect]
     Indication: RHEUMATOID ARTHRITIS
     Route: 058
     Dates: start: 20060407, end: 20060412

REACTIONS (5)
  - CONDITION AGGRAVATED [None]
  - HEADACHE [None]
  - NAUSEA [None]
  - PRURITUS [None]
  - VISION BLURRED [None]
